FAERS Safety Report 21694691 (Version 1)
Quarter: 2022Q4

REPORT INFORMATION
  Report Type: Spontaneous
  Country: FR (occurrence: FR)
  Receive Date: 20221207
  Receipt Date: 20221207
  Transmission Date: 20230113
  Serious: Yes (Hospitalization)
  Sender: FDA-Public Use
  Company Number: FR-ETHYPHARM-2021003224

PATIENT
  Age: 57 Year
  Sex: Male
  Weight: 77.7 kg

DRUGS (21)
  1. MORPHINE SULFATE [Suspect]
     Active Substance: MORPHINE SULFATE
     Indication: Abdominal pain
     Dosage: UNK
     Route: 065
     Dates: start: 20211212, end: 20211213
  2. AMLODIPINE [Concomitant]
     Active Substance: AMLODIPINE BESYLATE
     Indication: Hypertension
     Dosage: 10 MG 1-0-0
     Dates: start: 2018
  3. ESCITALOPRAM [Concomitant]
     Active Substance: ESCITALOPRAM OXALATE
     Indication: Depression
     Dosage: 15 MG
     Dates: start: 2018
  4. DULOXETINE [Concomitant]
     Active Substance: DULOXETINE
     Indication: Depression
     Dosage: 60 MG 1-0-1
  5. DULOXETINE [Concomitant]
     Active Substance: DULOXETINE
     Dosage: 120 MG
     Dates: start: 2018
  6. BACLOFEN [Concomitant]
     Active Substance: BACLOFEN
     Indication: Alcohol use disorder
     Dosage: DIVIDED IN 2 DAILY INTAKES.
     Dates: start: 20210531, end: 20210605
  7. BACLOFEN [Concomitant]
     Active Substance: BACLOFEN
     Dosage: DIVIDED IN 2 DAILY INTAKES.
     Dates: start: 20211201, end: 20211212
  8. BACLOFEN [Concomitant]
     Active Substance: BACLOFEN
     Dosage: DIVIDED IN 3 DAILY INTAKES.
     Dates: start: 20210606, end: 20210608
  9. BACLOFEN [Concomitant]
     Active Substance: BACLOFEN
     Dosage: DIVIDED IN 3 DAILY INTAKES.
     Dates: start: 20210615, end: 20210706
  10. BACLOFEN [Concomitant]
     Active Substance: BACLOFEN
     Dosage: UNK
     Dates: start: 20211213
  11. BACLOFEN [Concomitant]
     Active Substance: BACLOFEN
     Dosage: DIVIDED IN 3 DAILY INTAKES.
     Dates: start: 20210609, end: 20210611
  12. BACLOFEN [Concomitant]
     Active Substance: BACLOFEN
     Dosage: DIVIDED IN 3 DAILY INTAKES.
     Dates: start: 20210612, end: 20210614
  13. BACLOFEN [Concomitant]
     Active Substance: BACLOFEN
     Dosage: DIVIDED IN 3 DAILY INTAKES.
     Dates: start: 20210824, end: 20211130
  14. BACLOFEN [Concomitant]
     Active Substance: BACLOFEN
     Dosage: DIVIDED IN 2 DAILY INTAKES.
     Dates: start: 20210707, end: 20210823
  15. OXAZEPAM [Concomitant]
     Active Substance: OXAZEPAM
     Indication: Product used for unknown indication
     Dosage: 50 MG
  16. LYRICA [Concomitant]
     Active Substance: PREGABALIN
     Indication: Depression
     Dosage: 250 MG / 1-0-1
     Dates: start: 2018
  17. HYDROCORTISONE [Concomitant]
     Active Substance: HYDROCORTISONE
     Indication: Adrenal insufficiency
     Dosage: 25 MG
     Dates: start: 2018
  18. HYDROCORTISONE [Concomitant]
     Active Substance: HYDROCORTISONE
     Dosage: 10 MG 2-1/2-0
  19. FLUDROCORTISONE [Concomitant]
     Active Substance: FLUDROCORTISONE
     Indication: Adrenal insufficiency
     Dosage: 50 ?G 1-1/2-0
  20. FLUDROCORTISONE [Concomitant]
     Active Substance: FLUDROCORTISONE
     Dosage: 75 MG
     Dates: start: 2018
  21. ALLOPURINOL [Concomitant]
     Active Substance: ALLOPURINOL
     Indication: Adrenal insufficiency
     Dosage: 200 MG
     Dates: start: 2018

REACTIONS (3)
  - Pneumonia aspiration [Recovered/Resolved with Sequelae]
  - Coma [Recovered/Resolved]
  - Miosis [Recovered/Resolved]

NARRATIVE: CASE EVENT DATE: 20211213
